FAERS Safety Report 12405985 (Version 1)
Quarter: 2016Q2

REPORT INFORMATION
  Report Type: Spontaneous
  Country: CH (occurrence: CH)
  Receive Date: 20160526
  Receipt Date: 20160526
  Transmission Date: 20160815
  Serious: Yes (Death, Other)
  Sender: FDA-Public Use
  Company Number: CH-BRISTOL-MYERS SQUIBB COMPANY-BMS-2016-038780

PATIENT
  Sex: Female

DRUGS (2)
  1. YERVOY [Suspect]
     Active Substance: IPILIMUMAB
     Indication: MALIGNANT MELANOMA STAGE IV
     Route: 041
     Dates: start: 20151019, end: 20151218
  2. KEYTRUDA [Suspect]
     Active Substance: PEMBROLIZUMAB
     Indication: MALIGNANT MELANOMA STAGE IV
     Dosage: 150 MG, UNK
     Route: 065
     Dates: start: 20160407, end: 20160407

REACTIONS (4)
  - Malignant neoplasm progression [Fatal]
  - Hypophysitis [Not Recovered/Not Resolved]
  - Pulmonary oedema [Fatal]
  - Adrenal insufficiency [Not Recovered/Not Resolved]
